FAERS Safety Report 9471459 (Version 1)
Quarter: 2013Q3

REPORT INFORMATION
  Report Type: Spontaneous
  Country: GB (occurrence: GB)
  Receive Date: 20130822
  Receipt Date: 20130822
  Transmission Date: 20140515
  Serious: Yes (Death)
  Sender: FDA-Public Use
  Company Number: GB-ROXANE LABORATORIES, INC.-2013-RO-01377RO

PATIENT
  Age: 12 Year
  Sex: Female

DRUGS (4)
  1. CITALOPRAM [Suspect]
  2. PARACETAMOL [Suspect]
  3. DIHYDROCODEINE [Suspect]
  4. AMITRIPTYLINE [Suspect]

REACTIONS (1)
  - Toxicity to various agents [Fatal]
